FAERS Safety Report 23710327 (Version 1)
Quarter: 2024Q2

REPORT INFORMATION
  Report Type: Spontaneous
  Country: FR (occurrence: FR)
  Receive Date: 20240405
  Receipt Date: 20240405
  Transmission Date: 20240716
  Serious: Yes (Hospitalization)
  Sender: FDA-Public Use
  Company Number: FR-AFSSAPS-BX2024000023

PATIENT
  Age: 30 Year
  Sex: Female

DRUGS (3)
  1. PANTOPRAZOLE [Suspect]
     Active Substance: PANTOPRAZOLE
     Indication: Gastritis prophylaxis
     Dosage: 1 DOSAGE FORM, IN TOTAL
     Route: 040
     Dates: start: 20221120, end: 20221120
  2. CEFAZOLIN SODIUM [Suspect]
     Active Substance: CEFAZOLIN SODIUM
     Indication: Antibiotic prophylaxis
     Dosage: 1 DOSAGE FORM, IN TOTAL
     Route: 040
     Dates: start: 20221120, end: 20221120
  3. VISIPAQUE [Suspect]
     Active Substance: IODIXANOL
     Indication: Therapeutic embolisation
     Dosage: 1 DOSAGE FORM, IN TOTAL
     Route: 040
     Dates: start: 20221120, end: 20221120

REACTIONS (1)
  - Drug reaction with eosinophilia and systemic symptoms [Recovered/Resolved]

NARRATIVE: CASE EVENT DATE: 20221121
